FAERS Safety Report 7066533-7 (Version None)
Quarter: 2010Q4

REPORT INFORMATION
  Report Type: 
  Country: None (occurrence: None)
  Receive Date: 20101027
  Receipt Date: 20100324
  Transmission Date: 20110411
  Serious: No
  Sender: FDA-Public Use
  Company Number: US-WYE-H14317610

PATIENT
  Sex: Female
  Weight: 81.72 kg

DRUGS (2)
  1. PREMPRO [Suspect]
     Indication: HOT FLUSH
     Dosage: 0.4 MG (FREQUENCY UNKNOWN)
     Route: 048
     Dates: start: 20081201
  2. SIMVASTATIN [Concomitant]

REACTIONS (1)
  - WEIGHT INCREASED [None]
